FAERS Safety Report 5609071-8 (Version None)
Quarter: 2008Q1

REPORT INFORMATION
  Report Type: 
  Country: None (occurrence: None)
  Receive Date: 20080131
  Receipt Date: 20080123
  Transmission Date: 20080703
  Serious: Yes (Other)
  Sender: FDA-Public Use
  Company Number: HQWYE874106MAR07

PATIENT
  Sex: Male
  Weight: 86.7 kg

DRUGS (9)
  1. CYCLOSPORINE [Suspect]
     Indication: PROPHYLAXIS AGAINST TRANSPLANT REJECTION
     Route: 048
     Dates: start: 20060516
  2. ISOPHANE INSULIN [Concomitant]
     Indication: DIABETES MELLITUS
     Dosage: 52 UNIT EVERY 1 DAY
     Route: 058
     Dates: start: 20070212
  3. DILTIAZEM HCL [Concomitant]
     Indication: HYPERTENSION
     Route: 048
     Dates: start: 19950306
  4. AZATHIOPRINE [Concomitant]
     Indication: IMMUNOSUPPRESSANT DRUG THERAPY
     Route: 048
     Dates: start: 20020809
  5. ENALAPRIL [Concomitant]
     Indication: HYPERTENSION
     Route: 048
     Dates: start: 19950804
  6. SIMVASTATIN [Concomitant]
     Indication: HYPERLIPIDAEMIA
     Route: 048
     Dates: start: 19960823
  7. MAXEPA [Concomitant]
     Indication: HYPERLIPIDAEMIA
     Route: 048
     Dates: start: 19950616
  8. MIXTARD HUMAN 70/30 [Concomitant]
     Indication: DIABETES MELLITUS
     Dosage: 48 UNIT EVERY 1 DAY
     Route: 058
     Dates: start: 20020715
  9. PRAZOSIN HCL [Concomitant]
     Indication: HYPERTENSION
     Route: 048
     Dates: start: 19950306

REACTIONS (1)
  - LENTIGO MALIGNA STAGE UNSPECIFIED [None]
